FAERS Safety Report 10784493 (Version 2)
Quarter: 2015Q1

REPORT INFORMATION
  Report Type: Spontaneous
  Country: IN (occurrence: PL)
  Receive Date: 20150211
  Receipt Date: 20150225
  Transmission Date: 20150721
  Serious: Yes (Other)
  Sender: FDA-Public Use
  Company Number: IN-AUROBINDO-AUR-APL-2015-01109

PATIENT
  Age: 54 Year
  Sex: Male

DRUGS (1)
  1. SIMVASTATIN 20MG [Suspect]
     Active Substance: SIMVASTATIN
     Indication: HYPERCHOLESTEROLAEMIA
     Dosage: 60-80MG/ DAY
     Route: 065

REACTIONS (9)
  - Cognitive disorder [Recovering/Resolving]
  - Aggression [Recovering/Resolving]
  - Disturbance in attention [Recovering/Resolving]
  - Impaired work ability [Recovering/Resolving]
  - Depression [Recovering/Resolving]
  - Amnesia [Recovering/Resolving]
  - Nervousness [Recovering/Resolving]
  - Intentional overdose [Recovering/Resolving]
  - Insomnia [Recovering/Resolving]
